FAERS Safety Report 20863260 (Version 15)
Quarter: 2024Q3

REPORT INFORMATION
  Report Type: Report from Study
  Country: DE (occurrence: DE)
  Receive Date: 20220523
  Receipt Date: 20240812
  Transmission Date: 20241017
  Serious: Yes (Life-Threatening, Hospitalization, Other)
  Sender: ROCHE
  Company Number: DE-ROCHE-2252972

PATIENT
  Age: 56 Year
  Sex: Female
  Weight: 50 kg

DRUGS (11)
  1. OCREVUS [Suspect]
     Active Substance: OCRELIZUMAB
     Indication: Relapsing-remitting multiple sclerosis
     Dosage: 600MG, 271 DAYS
     Route: 042
     Dates: start: 20180604
  2. OCREVUS [Suspect]
     Active Substance: OCRELIZUMAB
     Route: 042
     Dates: start: 20180618
  3. OCREVUS [Suspect]
     Active Substance: OCRELIZUMAB
     Route: 042
     Dates: start: 20181218
  4. OCREVUS [Suspect]
     Active Substance: OCRELIZUMAB
     Route: 042
     Dates: start: 20191218
  5. OCREVUS [Suspect]
     Active Substance: OCRELIZUMAB
     Route: 042
     Dates: start: 20201217
  6. OCREVUS [Suspect]
     Active Substance: OCRELIZUMAB
     Dosage: SUBSEQUENT DOSE ADMINISTERED 600 MG ONCE IN 183 DAYS
     Route: 042
     Dates: start: 20210701
  7. OXYBUTYNIN HYDROCHLORIDE, S- [Suspect]
     Active Substance: ESOXYBUTYNIN CHLORIDE
     Indication: Product used for unknown indication
     Dosage: 1 MG/ML SOLUTION
     Route: 043
  8. ELIQUIS [Concomitant]
     Active Substance: APIXABAN
  9. ATORVASTATIN [Concomitant]
     Active Substance: ATORVASTATIN
  10. DOXEPIN [Concomitant]
     Active Substance: DOXEPIN
     Dosage: FREQUENCY TEXT:IN THE EVENING
  11. COMIRNATY [Concomitant]
     Indication: COVID-19 immunisation
     Dates: start: 20210404, end: 20210504

REACTIONS (44)
  - Dysphagia [Recovered/Resolved]
  - Fatigue [Recovered/Resolved]
  - Thirst [Recovered/Resolved]
  - White blood cells urine positive [Recovered/Resolved]
  - Protein urine present [Recovered/Resolved]
  - Blood urine present [Recovered/Resolved]
  - Paraesthesia [Recovered/Resolved]
  - Bursitis [Recovered/Resolved]
  - Tendonitis [Recovered/Resolved]
  - Oropharyngeal pain [Not Recovered/Not Resolved]
  - Muscular weakness [Not Recovered/Not Resolved]
  - Cognitive disorder [Not Recovered/Not Resolved]
  - Ligament sprain [Recovered/Resolved]
  - Fall [Unknown]
  - Hypersensitivity [Not Recovered/Not Resolved]
  - Intervertebral disc protrusion [Not Recovered/Not Resolved]
  - Hypoaesthesia [Recovered/Resolved]
  - Urinary tract infection [Recovered/Resolved]
  - Atonic urinary bladder [Recovering/Resolving]
  - Urinary retention [Not Recovered/Not Resolved]
  - Dysphonia [Recovered/Resolved]
  - Swelling face [Recovered/Resolved]
  - Body temperature increased [Recovered/Resolved]
  - Headache [Recovered/Resolved]
  - Asthenia [Recovered/Resolved]
  - Nasal congestion [Not Recovered/Not Resolved]
  - Cystitis noninfective [Not Recovered/Not Resolved]
  - Cataract [Recovered/Resolved]
  - Dysuria [Unknown]
  - Nephrolithiasis [Unknown]
  - COVID-19 [Recovered/Resolved]
  - Throat irritation [Recovered/Resolved]
  - Infusion related reaction [Recovered/Resolved]
  - Gait disturbance [Recovered/Resolved]
  - Muscle tightness [Recovered/Resolved]
  - Haematoma [Recovered/Resolved]
  - Dyspnoea exertional [Recovered/Resolved]
  - B-lymphocyte count decreased [Recovered/Resolved]
  - Nausea [Not Recovered/Not Resolved]
  - Gastritis [Not Recovered/Not Resolved]
  - Oesophageal achalasia [Not Recovered/Not Resolved]
  - Thyroid cyst [Not Recovered/Not Resolved]
  - Haemoglobin decreased [Not Recovered/Not Resolved]
  - Weight decreased [Recovering/Resolving]

NARRATIVE: CASE EVENT DATE: 20180604
